FAERS Safety Report 9391532 (Version 2)
Quarter: 2013Q3

REPORT INFORMATION
  Report Type: Spontaneous
  Country: US (occurrence: US)
  Receive Date: 20130709
  Receipt Date: 20130913
  Transmission Date: 20140515
  Serious: Yes (Death, Hospitalization)
  Sender: FDA-Public Use
  Company Number: US-JNJFOC-20130620629

PATIENT
  Age: 91 Year
  Sex: Male

DRUGS (2)
  1. ZYTIGA [Suspect]
     Indication: PROSTATE CANCER
     Dosage: 250 MG X 4 TABLETS
     Route: 048
  2. ZOMETA [Suspect]
     Indication: BONE DISORDER
     Route: 042

REACTIONS (4)
  - Cardiac failure [Fatal]
  - Hospitalisation [Unknown]
  - Heart rate increased [Unknown]
  - Adverse event [Unknown]
